FAERS Safety Report 8241695-4 (Version None)
Quarter: 2012Q1

REPORT INFORMATION
  Report Type: 
  Country: None (occurrence: None)
  Receive Date: 20120328
  Receipt Date: 20120315
  Transmission Date: 20120608
  Serious: Yes (Other)
  Sender: FDA-Public Use
  Company Number: PL-GILEAD-2011-0048255

PATIENT
  Sex: Male

DRUGS (2)
  1. HEPSERA [Suspect]
     Indication: HEPATITIS B
     Dosage: 10 MG, QD
     Route: 048
     Dates: start: 20080408, end: 20090218
  2. LAMIVUDINE [Suspect]
     Indication: HEPATITIS B
     Dosage: 100 MG, QD
     Route: 048
     Dates: start: 20070101

REACTIONS (1)
  - ASCITES [None]
